FAERS Safety Report 23934999 (Version 1)
Quarter: 2024Q2

REPORT INFORMATION
  Report Type: Spontaneous
  Country: US (occurrence: None)
  Receive Date: 20240604
  Receipt Date: 20240604
  Transmission Date: 20240717
  Serious: Yes (Death, Hospitalization)
  Sender: FDA-Public Use
  Company Number: US-MDD US Operations-MDD202405-001626

PATIENT
  Age: 63 Year
  Sex: Female
  Weight: 63.5 kg

DRUGS (13)
  1. APOKYN [Suspect]
     Active Substance: APOMORPHINE HYDROCHLORIDE
     Indication: Parkinson^s disease
     Dates: start: 202204
  2. APOKYN [Suspect]
     Active Substance: APOMORPHINE HYDROCHLORIDE
     Indication: On and off phenomenon
     Dosage: 3ML, CARTRIDGE 1 EA CART
     Route: 058
  3. DHIVY [Suspect]
     Active Substance: CARBIDOPA\LEVODOPA
     Indication: Product used for unknown indication
     Dosage: NOT PROVIDED
  4. SINEMET [Concomitant]
     Active Substance: CARBIDOPA\LEVODOPA
     Dosage: EACH DF OF 50-200 MG, TWICE A DAY
  5. SINEMET [Concomitant]
     Active Substance: CARBIDOPA\LEVODOPA
     Dosage: EACH DF OF 25/100 MG, FOUR TIMES A DAY
  6. OMEPRAZOLE [Concomitant]
     Active Substance: DONEPEZIL HYDROCHLORIDE\OMEPRAZOLE\OMEPRAZOLE MAGNESIUM
     Dosage: 20 MG ONCE EVERY OTHER DAY
  7. FERROUS SULFATE [Concomitant]
     Active Substance: FERROUS SULFATE
     Dosage: 325 MG ONCE A DAY
  8. BACLOFEN [Concomitant]
     Active Substance: BACLOFEN
     Dosage: 10 MGS 4 TIMES A DAY
  9. POTASSIUM [Concomitant]
     Active Substance: POTASSIUM
     Dosage: 20MEQ ONCE A DAY
  10. ROPINIROLE [Concomitant]
     Active Substance: ROPINIROLE
     Dosage: 4 MGS 4 TIMES A DAY
  11. ROPINIROLE [Concomitant]
     Active Substance: ROPINIROLE
  12. GOCOVRI [Concomitant]
     Active Substance: AMANTADINE
     Dosage: 137 MG TWICE A DAY
  13. GOCOVRI [Concomitant]
     Active Substance: AMANTADINE

REACTIONS (3)
  - Pneumonia [Fatal]
  - Parkinson^s disease [Fatal]
  - Hallucination [Unknown]

NARRATIVE: CASE EVENT DATE: 20240519
